FAERS Safety Report 23993665 (Version 1)
Quarter: 2024Q2

REPORT INFORMATION
  Report Type: Spontaneous
  Country: US (occurrence: US)
  Receive Date: 20240620
  Receipt Date: 20240620
  Transmission Date: 20240716
  Serious: Yes (Other)
  Sender: FDA-Public Use
  Company Number: US-UNITED THERAPEUTICS-UNT-2024-017770

PATIENT
  Age: 37 Year
  Sex: Female

DRUGS (4)
  1. REMODULIN [Suspect]
     Active Substance: TREPROSTINIL
     Indication: Pulmonary arterial hypertension
     Dosage: UNK UNK, CONTINUING
  2. MACITENTAN [Concomitant]
     Active Substance: MACITENTAN
     Indication: Pulmonary arterial hypertension
     Dosage: UNK
  3. SILDENAFIL [Concomitant]
     Active Substance: SILDENAFIL
     Indication: Pulmonary arterial hypertension
     Dosage: UNK
  4. RIOCIGUAT [Concomitant]
     Active Substance: RIOCIGUAT
     Indication: Pulmonary arterial hypertension
     Dosage: UNK

REACTIONS (10)
  - Pulmonary arterial hypertension [Recovered/Resolved]
  - Right ventricular failure [Unknown]
  - Serous retinal detachment [Recovered/Resolved]
  - Sudden visual loss [Recovering/Resolving]
  - Hypoxia [Unknown]
  - Venous pressure increased [Recovering/Resolving]
  - Dyspnoea [Unknown]
  - Oedema peripheral [Unknown]
  - Ovarian cyst [Unknown]
  - Cardiomegaly [Unknown]
